FAERS Safety Report 5333565-6 (Version None)
Quarter: 2007Q2

REPORT INFORMATION
  Report Type: 
  Country: None (occurrence: None)
  Receive Date: 20070308
  Receipt Date: 20061115
  Transmission Date: 20071010
  Serious: No
  Sender: FDA-Public Use
  Company Number: 2006-BP-13244BP

PATIENT
  Age: 78 Year
  Sex: Female

DRUGS (3)
  1. SPIRIVA [Suspect]
     Indication: CHRONIC OBSTRUCTIVE PULMONARY DISEASE
     Dosage: 18 MCG (18 MCG, 1 IN 1 D), IH
     Route: 055
     Dates: start: 20061108
  2. OXYGEN (OXYGEN) [Concomitant]
  3. MULTIVITAMIN [Concomitant]

REACTIONS (7)
  - CHEST DISCOMFORT [None]
  - DRUG INEFFECTIVE [None]
  - DRY MOUTH [None]
  - DYSPHONIA [None]
  - HYPOAESTHESIA [None]
  - OEDEMA [None]
  - OEDEMA PERIPHERAL [None]
